FAERS Safety Report 4661755-4 (Version None)
Quarter: 2005Q2

REPORT INFORMATION
  Report Type: 
  Country: None (occurrence: None)
  Receive Date: 20050513
  Receipt Date: 20050503
  Transmission Date: 20051028
  Serious: Yes (Death)
  Sender: FDA-Public Use
  Company Number: PHEH2005US05095

PATIENT
  Age: 21 Year
  Sex: Female

DRUGS (4)
  1. TEGRETOL [Suspect]
     Indication: EPILEPSY
  2. PROPRANOLOL HYDROCHLORIDE [Suspect]
     Indication: CARDIAC DISORDER
  3. LAMICTAL [Suspect]
     Indication: EPILEPSY
     Route: 048
     Dates: start: 20050201
  4. TRILEPTAL [Suspect]
     Indication: EPILEPSY

REACTIONS (2)
  - CONVULSION [None]
  - SUDDEN DEATH [None]
